FAERS Safety Report 18360094 (Version 2)
Quarter: 2020Q4

REPORT INFORMATION
  Report Type: Not Available
  Country: GB (occurrence: GB)
  Receive Date: 20201008
  Receipt Date: 20201026
  Transmission Date: 20210114
  Serious: No
  Sender: FDA-Public Use
  Company Number: GB-LEXICON PHARMACEUTICALS, INC-20-1606-00767

PATIENT
  Sex: Male

DRUGS (9)
  1. LANSOPRAZOLE. [Concomitant]
     Active Substance: LANSOPRAZOLE
  2. XERMELO [Suspect]
     Active Substance: TELOTRISTAT ETHYL
     Route: 065
  3. XERMELO [Suspect]
     Active Substance: TELOTRISTAT ETHYL
     Indication: PRODUCT USED FOR UNKNOWN INDICATION
     Dosage: DOSE NOT REPORTED
     Route: 065
  4. LOPERAMIDE [Concomitant]
     Active Substance: LOPERAMIDE
  5. ROTIGOTINE [Concomitant]
     Active Substance: ROTIGOTINE
  6. XERMELO [Suspect]
     Active Substance: TELOTRISTAT ETHYL
     Route: 065
  7. CODEINE [Concomitant]
     Active Substance: CODEINE
  8. CO-CARELDOPA [Concomitant]
     Active Substance: CARBIDOPA\LEVODOPA
  9. DIORALYTE [Concomitant]
     Active Substance: CITRIC ACID MONOHYDRATE\DEXTROSE\POTASSIUM CATION\SODIUM CHLORIDE

REACTIONS (2)
  - Off label use [Unknown]
  - Gastrointestinal stoma output increased [Recovered/Resolved]
